FAERS Safety Report 4772173-2 (Version None)
Quarter: 2005Q3

REPORT INFORMATION
  Report Type: 
  Country: None (occurrence: None)
  Receive Date: 20050919
  Receipt Date: 20040927
  Transmission Date: 20060218
  Serious: No
  Sender: FDA-Public Use
  Company Number: US-BRISTOL-MYERS SQUIBB COMPANY-12714465

PATIENT
  Age: 50 Year
  Sex: Male

DRUGS (2)
  1. DEFINITY [Suspect]
     Indication: CHEST PAIN
     Dosage: UNDILUTED BOLUS FOLLOWED BY SALINE FLUSH
     Route: 040
     Dates: start: 20040922
  2. DEFINITY [Suspect]
     Indication: DYSPNOEA
     Dosage: UNDILUTED BOLUS FOLLOWED BY SALINE FLUSH
     Route: 040
     Dates: start: 20040922

REACTIONS (2)
  - BACK PAIN [None]
  - PAIN [None]
